FAERS Safety Report 7057857-8 (Version None)
Quarter: 2010Q4

REPORT INFORMATION
  Report Type: 
  Country: None (occurrence: None)
  Receive Date: 20101022
  Receipt Date: 20101015
  Transmission Date: 20110411
  Serious: Yes (Other)
  Sender: FDA-Public Use
  Company Number: US-PFIZER INC-2009165540

PATIENT
  Sex: Male
  Weight: 108.84 kg

DRUGS (9)
  1. CHANTIX [Suspect]
     Indication: SMOKING CESSATION THERAPY
     Dosage: 0.5 MG, 1X/DAY
     Route: 048
     Dates: start: 20100911, end: 20100901
  2. CHANTIX [Suspect]
     Dosage: 1 MG, 2X/DAY
     Route: 048
     Dates: start: 20100901
  3. OXYCODONE [Concomitant]
     Indication: PAIN
     Dosage: UNK
  4. MORPHINE [Concomitant]
     Indication: PAIN
     Dosage: 45 MG, 3X/DAY
  5. NEURONTIN [Concomitant]
     Indication: CARDIOVASCULAR DISORDER
     Dosage: UNK
  6. LASIX [Concomitant]
     Indication: OEDEMA PERIPHERAL
     Dosage: 80 MG, UNK
  7. LAMOTRIGINE [Concomitant]
     Indication: MENTAL DISORDER
     Dosage: 100 MG, 2X/DAY
  8. CITALOPRAM [Concomitant]
     Indication: MENTAL DISORDER
     Dosage: UNK
  9. PRAZOSIN [Concomitant]
     Indication: SLEEP DISORDER
     Dosage: 5 MG, DAILY

REACTIONS (1)
  - NERVOUSNESS [None]
